FAERS Safety Report 6178850-3 (Version None)
Quarter: 2009Q2

REPORT INFORMATION
  Report Type: 
  Country: None (occurrence: None)
  Receive Date: 20090504
  Receipt Date: 20090320
  Transmission Date: 20091009
  Serious: No
  Sender: FDA-Public Use
  Company Number: US-ALEXION-A200900230

PATIENT
  Sex: Male

DRUGS (2)
  1. SOLIRIS [Suspect]
     Indication: PAROXYSMAL NOCTURNAL HAEMOGLOBINURIA
     Dosage: 600 MG, QW
     Route: 042
     Dates: start: 20090318
  2. COUMADIN [Concomitant]
     Dosage: 5 MG, QD
     Route: 048

REACTIONS (1)
  - HEADACHE [None]
